FAERS Safety Report 23626561 (Version 1)
Quarter: 2024Q1

REPORT INFORMATION
  Report Type: Spontaneous
  Country: US (occurrence: US)
  Receive Date: 20240313
  Receipt Date: 20240313
  Transmission Date: 20240410
  Serious: No
  Sender: FDA-Public Use
  Company Number: US-BRISTOL-MYERS SQUIBB COMPANY-2024-040318

PATIENT
  Age: 82 Year
  Sex: Male
  Weight: 81.19 kg

DRUGS (2)
  1. POMALYST [Suspect]
     Active Substance: POMALIDOMIDE
     Indication: Plasma cell myeloma
     Route: 048
     Dates: start: 202401
  2. POMALYST [Suspect]
     Active Substance: POMALIDOMIDE
     Dosage: EVERY OTHER DAY
     Route: 048

REACTIONS (2)
  - Dizziness [Recovered/Resolved]
  - Prescribed underdose [Unknown]

NARRATIVE: CASE EVENT DATE: 20240228
